FAERS Safety Report 8193762 (Version 2)
Quarter: 2012Q4

REPORT INFORMATION
  Report Type: 
  Country: KR (occurrence: KR)
  Receive Date: 20111021
  Receipt Date: 20121206
  Transmission Date: 20130627
  Serious: Yes (Death, Other)
  Sender: FDA-Public Use
  Company Number: KR-ELI_LILLY_AND_COMPANY-KR201110005268

PATIENT

DRUGS (3)
  1. GEMCITABINE HYDROCHLORIDE [Suspect]
     Indication: PANCREATIC CARCINOMA NON-RESECTABLE
     Dosage: 1250 mg/m2,day 1 and 8 of 21 day cycle
  2. ERLOTINIB [Concomitant]
     Dosage: 100 mg, qd
  3. CISPLATIN [Concomitant]
     Dosage: 25 mg/m2, day1 and 8 of 21 day cycle

REACTIONS (1)
  - Death [Fatal]
